FAERS Safety Report 11794843 (Version 3)
Quarter: 2017Q3

REPORT INFORMATION
  Report Type: Report from Study
  Country: GB (occurrence: GB)
  Receive Date: 20151202
  Receipt Date: 20170908
  Transmission Date: 20171127
  Serious: Yes (Death, Hospitalization, Other)
  Sender: FDA-Public Use
  Company Number: GB-VIIV HEALTHCARE LIMITED-GB2015GSK171107

PATIENT
  Age: 70 Year
  Sex: Male
  Weight: 80 kg

DRUGS (4)
  1. RITONAVIR. [Concomitant]
     Active Substance: RITONAVIR
     Dosage: 100 MG, QD
     Dates: start: 20021122
  2. SAQUINAVIR [Concomitant]
     Active Substance: SAQUINAVIR
     Dosage: 500 MG, QD
     Dates: start: 20091223
  3. MARAVIROC [Suspect]
     Active Substance: MARAVIROC
     Indication: HIV INFECTION
     Dosage: UNK
     Dates: start: 20091210, end: 20091223
  4. FOSAMPRENAVIR [Concomitant]
     Active Substance: FOSAMPRENAVIR
     Dosage: 700 MG, QD
     Dates: start: 20091223

REACTIONS (1)
  - Hepatic failure [Fatal]

NARRATIVE: CASE EVENT DATE: 20130707
